FAERS Safety Report 6115814-X (Version None)
Quarter: 2009Q1

REPORT INFORMATION
  Report Type: 
  Country: None (occurrence: None)
  Receive Date: 20090311
  Receipt Date: 20090225
  Transmission Date: 20090719
  Serious: Yes (Hospitalization, Other)
  Sender: FDA-Public Use
  Company Number: 238889J08USA

PATIENT
  Age: 23 Year
  Sex: Female

DRUGS (10)
  1. REBIF [Suspect]
     Indication: MULTIPLE SCLEROSIS
     Dosage: 44 MCG, 3 IN 1 WEEKS, SUBCUTANEOUS
     Route: 058
     Dates: start: 20080214
  2. PEPCID [Concomitant]
  3. ALLEGRA [Concomitant]
  4. TOPROL-XL [Concomitant]
  5. RITALIN [Concomitant]
  6. CALCIUM WITH VITAMIN D (CALCIUM WITH VITAMIN D) [Concomitant]
  7. VITAMIN D [Concomitant]
  8. STEROID (CORTICOSTEROIDS) [Concomitant]
  9. CIPRO [Concomitant]
  10. ADVIL [Concomitant]

REACTIONS (8)
  - DRUG INEFFECTIVE [None]
  - EYELID FUNCTION DISORDER [None]
  - HYPOKALAEMIA [None]
  - MOVEMENT DISORDER [None]
  - MYOPATHY [None]
  - NAUSEA [None]
  - PARALYSIS [None]
  - POSTURAL ORTHOSTATIC TACHYCARDIA SYNDROME [None]
